FAERS Safety Report 6963279-8 (Version None)
Quarter: 2010Q3

REPORT INFORMATION
  Report Type: 
  Country: None (occurrence: None)
  Receive Date: 20100902
  Receipt Date: 20100830
  Transmission Date: 20110219
  Serious: Yes (Other)
  Sender: FDA-Public Use
  Company Number: US-ROXANE LABORATORIES, INC.-2010-RO-01154RO

PATIENT
  Age: 43 Year
  Sex: Female

DRUGS (2)
  1. MYCOPHENOLATE MOFETIL [Suspect]
     Indication: LUPUS NEPHRITIS
     Dosage: 3000 MG
  2. FK506 [Suspect]
     Indication: LUPUS NEPHRITIS
     Dosage: 3 MG

REACTIONS (3)
  - CELLULITIS [None]
  - DRUG INEFFECTIVE FOR UNAPPROVED INDICATION [None]
  - PNEUMONIA [None]
